FAERS Safety Report 15215217 (Version 2)
Quarter: 2018Q3

REPORT INFORMATION
  Report Type: Spontaneous
  Country: US (occurrence: US)
  Receive Date: 20180730
  Receipt Date: 20180803
  Transmission Date: 20181010
  Serious: Yes (Death, Hospitalization)
  Sender: FDA-Public Use
  Company Number: US-JNJFOC-20180737550

PATIENT
  Age: 88 Year
  Sex: Female
  Weight: 44 kg

DRUGS (15)
  1. METOPROLOL. [Concomitant]
     Active Substance: METOPROLOL
  2. OMEPRAZOLE. [Concomitant]
     Active Substance: OMEPRAZOLE
  3. POTASSIUM CHLORIDE. [Concomitant]
     Active Substance: POTASSIUM CHLORIDE
  4. ISOSORBIDE. [Concomitant]
     Active Substance: ISOSORBIDE
  5. CYANOCOBALAMIN. [Concomitant]
     Active Substance: CYANOCOBALAMIN
  6. SPIRONOLACTONE. [Concomitant]
     Active Substance: SPIRONOLACTONE
  7. NITROSTAT [Concomitant]
     Active Substance: NITROGLYCERIN
  8. CENTRUM [Concomitant]
     Active Substance: VITAMINS
  9. ALLOPURINOL. [Concomitant]
     Active Substance: ALLOPURINOL
  10. GABAPENTIN. [Concomitant]
     Active Substance: GABAPENTIN
  11. IMBRUVICA [Suspect]
     Active Substance: IBRUTINIB
     Indication: B-CELL SMALL LYMPHOCYTIC LYMPHOMA
     Route: 048
     Dates: start: 201804
  12. LISINOPRIL. [Concomitant]
     Active Substance: LISINOPRIL
  13. LEVEMIR [Concomitant]
     Active Substance: INSULIN DETEMIR
  14. SUCRALFATE. [Concomitant]
     Active Substance: SUCRALFATE
  15. FUROSEMIDE. [Concomitant]
     Active Substance: FUROSEMIDE

REACTIONS (2)
  - Hospitalisation [Unknown]
  - Pneumonia [Fatal]

NARRATIVE: CASE EVENT DATE: 20180702
